FAERS Safety Report 4922322-8 (Version None)
Quarter: 2006Q1

REPORT INFORMATION
  Report Type: 
  Country: None (occurrence: None)
  Receive Date: 20060221
  Receipt Date: 20060207
  Transmission Date: 20060701
  Serious: Yes (Hospitalization)
  Sender: FDA-Public Use
  Company Number: 2006015468

PATIENT
  Age: 53 Year
  Sex: Male
  Weight: 75 kg

DRUGS (2)
  1. DEPO-MEDROL [Suspect]
     Indication: ABDOMINAL PAIN
     Dosage: 1 INTRAMUSCULAR
     Route: 030
     Dates: start: 20060104, end: 20060104
  2. DEPO-MEDROL [Suspect]
     Indication: DIARRHOEA
     Dosage: 1 INTRAMUSCULAR
     Route: 030
     Dates: start: 20060104, end: 20060104

REACTIONS (3)
  - ANAPHYLACTIC SHOCK [None]
  - REACTION TO DRUG EXCIPIENTS [None]
  - SIMILAR REACTION ON PREVIOUS EXPOSURE TO DRUG [None]
